FAERS Safety Report 4978363-8 (Version None)
Quarter: 2006Q2

REPORT INFORMATION
  Report Type: 
  Country: None (occurrence: None)
  Receive Date: 20060414
  Receipt Date: 20060403
  Transmission Date: 20061013
  Serious: Yes (Life-Threatening)
  Sender: FDA-Public Use
  Company Number: T200600041

PATIENT
  Age: 61 Year
  Sex: Female

DRUGS (1)
  1. OPTIRAY 160 [Suspect]
     Indication: COMPUTERISED TOMOGRAM
     Dosage: 70 ML, SINGLE INTRAVENOUS
     Route: 042
     Dates: start: 20060307, end: 20060307

REACTIONS (4)
  - BLOOD PRESSURE DECREASED [None]
  - DEPRESSED LEVEL OF CONSCIOUSNESS [None]
  - DYSPNOEA [None]
  - OXYGEN SATURATION DECREASED [None]
